FAERS Safety Report 16199054 (Version 2)
Quarter: 2019Q2

REPORT INFORMATION
  Report Type: Spontaneous
  Country: GB (occurrence: GB)
  Receive Date: 20190415
  Receipt Date: 20190426
  Transmission Date: 20190711
  Serious: Yes (Other)
  Sender: FDA-Public Use
  Company Number: GB-PFIZER INC-2019113548

PATIENT
  Age: 23 Year
  Sex: Female

DRUGS (1)
  1. SAYANA PRESS [Suspect]
     Active Substance: MEDROXYPROGESTERONE\MEDROXYPROGESTERONE ACETATE
     Indication: CONTRACEPTION
     Dosage: 1 STAT
     Route: 058
     Dates: start: 20190313

REACTIONS (3)
  - Injection site extravasation [Unknown]
  - Product administration error [Unknown]
  - Incorrect dose administered [Unknown]

NARRATIVE: CASE EVENT DATE: 20190313
